FAERS Safety Report 24742267 (Version 1)
Quarter: 2024Q4

REPORT INFORMATION
  Report Type: Spontaneous
  Country: US (occurrence: US)
  Receive Date: 20241217
  Receipt Date: 20241217
  Transmission Date: 20250115
  Serious: No
  Sender: GLAXOSMITHKLINE
  Company Number: US-GSKCCFUS-Case-02157254_AE-118925

PATIENT
  Age: 84 Year
  Sex: Male

DRUGS (2)
  1. VALTREX [Suspect]
     Active Substance: VALACYCLOVIR HYDROCHLORIDE
     Indication: Product used for unknown indication
     Dosage: 250 MG
  2. ACYCLOVIR [Suspect]
     Active Substance: ACYCLOVIR
     Indication: Seizure
     Dosage: 100 MG, EVERY 4 HOURS EXCEPT AT BED TIME

REACTIONS (6)
  - Tachycardia [Recovered/Resolved]
  - Paraesthesia [Unknown]
  - Inappropriate schedule of product administration [Unknown]
  - Product use in unapproved therapeutic environment [Unknown]
  - Wrong technique in product usage process [Unknown]
  - Product use issue [Unknown]
